FAERS Safety Report 12557545 (Version 1)
Quarter: 2016Q3

REPORT INFORMATION
  Report Type: Spontaneous
  Country: US (occurrence: US)
  Receive Date: 20160714
  Receipt Date: 20160714
  Transmission Date: 20161109
  Serious: Yes (Hospitalization, Other)
  Sender: FDA-Public Use
  Company Number: US-APOTEX-2016AP009599

PATIENT
  Age: 74 Year
  Sex: Female

DRUGS (4)
  1. DROXIDOPA [Suspect]
     Active Substance: DROXIDOPA
     Indication: ORTHOSTATIC HYPOTENSION
  2. DROXIDOPA [Suspect]
     Active Substance: DROXIDOPA
     Indication: MULTIPLE SYSTEM ATROPHY
     Dosage: 100 MG, UNK
     Route: 065
     Dates: start: 20160618, end: 20160620
  3. DROXIDOPA [Suspect]
     Active Substance: DROXIDOPA
     Indication: DIZZINESS
     Dosage: 400 MG, TID
     Route: 065
     Dates: start: 20160620
  4. MIDODRINE HYDROCHLORIDE. [Suspect]
     Active Substance: MIDODRINE HYDROCHLORIDE
     Indication: PRODUCT USED FOR UNKNOWN INDICATION
     Route: 065

REACTIONS (2)
  - Unresponsive to stimuli [Unknown]
  - Hypotension [Unknown]

NARRATIVE: CASE EVENT DATE: 20160618
